FAERS Safety Report 9227540 (Version 1)
Quarter: 2013Q2

REPORT INFORMATION
  Report Type: Not Available
  Country: FR (occurrence: FR)
  Receive Date: 20130412
  Receipt Date: 20130412
  Transmission Date: 20140414
  Serious: Yes (Hospitalization)
  Sender: FDA-Public Use
  Company Number: FR-ASTELLAS-2013EU003274

PATIENT
  Age: 7 Year
  Sex: Male

DRUGS (1)
  1. MYCAMINE [Suspect]
     Dosage: 25 MG, UNKNOWN/D
     Route: 042
     Dates: start: 20120625, end: 20120716

REACTIONS (2)
  - Hepatitis [Recovering/Resolving]
  - Rash [Recovering/Resolving]
